FAERS Safety Report 23054342 (Version 2)
Quarter: 2024Q3

REPORT INFORMATION
  Report Type: Spontaneous
  Country: US (occurrence: US)
  Receive Date: 20231011
  Receipt Date: 20240918
  Transmission Date: 20241016
  Serious: No
  Sender: SANOFI AVENTIS
  Company Number: US-SA-SAC20231009000366

PATIENT
  Age: 54 Year
  Sex: Female
  Weight: 41.723 kg

DRUGS (1)
  1. DUPIXENT [Suspect]
     Active Substance: DUPILUMAB
     Indication: Asthma
     Dosage: 200 MG, QOW
     Route: 058
     Dates: start: 201912

REACTIONS (2)
  - COVID-19 [Unknown]
  - Illness [Unknown]

NARRATIVE: CASE EVENT DATE: 20240101
